FAERS Safety Report 6391188-4 (Version None)
Quarter: 2009Q4

REPORT INFORMATION
  Report Type: 
  Country: None (occurrence: None)
  Receive Date: 20091007
  Receipt Date: 20090925
  Transmission Date: 20100525
  Serious: Yes (Hospitalization)
  Sender: FDA-Public Use
  Company Number: US-BAYER-200932865NA

PATIENT
  Age: 65 Year
  Sex: Female
  Weight: 74 kg

DRUGS (5)
  1. SORAFENIB [Suspect]
     Indication: NON-SMALL CELL LUNG CANCER
     Dosage: TOTAL DAILY DOSE: 800 MG  UNIT DOSE: 200 MG
     Route: 048
     Dates: start: 20090814, end: 20090904
  2. LOVENOX [Concomitant]
     Dosage: TOTAL DAILY DOSE: 40 MG
     Route: 058
  3. PRILOSEC [Concomitant]
     Dosage: TOTAL DAILY DOSE: 20 MG
  4. MAXZIDE [Concomitant]
     Dosage: TOTAL DAILY DOSE: 0.25 MG
     Route: 048
     Dates: start: 20010101
  5. POTASSIUM CHLORIDE [Concomitant]
     Dosage: TOTAL DAILY DOSE: 40 MEQ
     Route: 048
     Dates: start: 20090903

REACTIONS (1)
  - PULMONARY EMBOLISM [None]
